FAERS Safety Report 17767940 (Version 4)
Quarter: 2020Q3

REPORT INFORMATION
  Report Type: Spontaneous
  Country: US (occurrence: US)
  Receive Date: 20200511
  Receipt Date: 20200902
  Transmission Date: 20201102
  Serious: Yes (Other)
  Sender: FDA-Public Use
  Company Number: US-PFIZER INC-2020186984

PATIENT
  Age: 7 Month
  Sex: Male

DRUGS (2)
  1. GENOTROPIN MQ [Suspect]
     Active Substance: SOMATROPIN
     Dosage: 0.2 MG, DAILY
     Dates: start: 20200405
  2. GENOTROPIN MQ [Suspect]
     Active Substance: SOMATROPIN
     Indication: PRADER-WILLI SYNDROME
     Dosage: 0.2 MG, 1X/DAY (0.2MG, INJECTION, EVERY NIGHT)
     Dates: start: 202004, end: 20200503

REACTIONS (5)
  - Nasopharyngitis [Unknown]
  - Choking [Unknown]
  - Sinusitis [Recovering/Resolving]
  - Gastrooesophageal reflux disease [Unknown]
  - Cough [Recovering/Resolving]

NARRATIVE: CASE EVENT DATE: 20200503
